FAERS Safety Report 4566856-7 (Version None)
Quarter: 2005Q1

REPORT INFORMATION
  Report Type: 
  Country: None (occurrence: None)
  Receive Date: 20050201
  Receipt Date: 20020418
  Transmission Date: 20050727
  Serious: Yes (Other)
  Sender: FDA-Public Use
  Company Number: US-BRISTOL-MYERS SQUIBB COMPANY-11836335

PATIENT
  Age: 58 Year
  Sex: Male

DRUGS (6)
  1. STADOL [Suspect]
     Route: 045
     Dates: start: 19951215, end: 19971201
  2. LORCET-HD [Concomitant]
  3. DEPAKOTE [Concomitant]
  4. VALIUM [Concomitant]
  5. PHENERGAN [Concomitant]
  6. PERCOCET [Concomitant]

REACTIONS (1)
  - DEPENDENCE [None]
